FAERS Safety Report 9302954 (Version 2)
Quarter: 2013Q1

REPORT INFORMATION
  Report Type: Spontaneous
  Country: DE (occurrence: None)
  Receive Date: 20130131
  Receipt Date: 20130205
  Transmission Date: 20140127
  Serious: Yes (Other)
  Sender: FDA-Public Use
  Company Number: 219866

PATIENT
  Sex: Male
  Weight: 100 kg

DRUGS (3)
  1. INNOHEP (TINZAPARIN SODIUM) [Suspect]
     Indication: ILEUS
     Route: 058
     Dates: start: 20120727, end: 20121031
  2. INNOHEP (TINZAPARIN SODIUM) [Suspect]
     Indication: FACTOR V LEIDEN MUTATION
     Route: 058
     Dates: start: 20120727, end: 20121031
  3. XARELTO [Suspect]
     Indication: FACTOR V LEIDEN MUTATION
     Route: 048
     Dates: start: 20121101, end: 20121220

REACTIONS (1)
  - Alopecia [None]
